FAERS Safety Report 9924272 (Version 3)
Quarter: 2014Q1

REPORT INFORMATION
  Report Type: Report from Study
  Country: US (occurrence: US)
  Receive Date: 20140226
  Receipt Date: 20140307
  Transmission Date: 20141002
  Serious: Yes (Hospitalization)
  Sender: FDA-Public Use
  Company Number: US-BRISTOL-MYERS SQUIBB COMPANY-19367044

PATIENT
  Age: 47 Year
  Sex: Male
  Weight: 104.8 kg

DRUGS (6)
  1. NIVOLUMAB [Suspect]
     Indication: METASTATIC MALIGNANT MELANOMA
     Dosage: INTERRUPTED:30JUN13
     Route: 042
     Dates: start: 20130521
  2. IPILIMUMAB [Suspect]
     Indication: METASTATIC MALIGNANT MELANOMA
     Route: 042
     Dates: start: 20130813
  3. FLUOCINONIDE [Concomitant]
     Dosage: 1DF=1 APP,?CREAM
     Dates: start: 2009
  4. VITAMIN D3 [Concomitant]
     Dates: start: 20101029
  5. FISH OIL [Concomitant]
     Dates: start: 20120921
  6. TYLENOL [Concomitant]

REACTIONS (1)
  - Pyrexia [Recovered/Resolved]
